FAERS Safety Report 9547063 (Version 1)
Quarter: 2013Q2

REPORT INFORMATION
  Report Type: Spontaneous
  Country: US (occurrence: None)
  Receive Date: 20130606
  Receipt Date: 20130606
  Transmission Date: 20140414
  Serious: Yes (Other)
  Sender: FDA-Public Use
  Company Number: 163-POMAL-13044712

PATIENT
  Age: 63 Year
  Sex: Female

DRUGS (8)
  1. POMALYST [Suspect]
     Indication: PLASMA CELL MYELOMA
     Dosage: 4 MG, 21 IN 21 D, PO
     Route: 048
     Dates: start: 20130411
  2. ACYCLOVIR (ACICLOVIR) (UNKNOWN) [Concomitant]
  3. FEXOFENADINE HCL (FEXOFENADINE HYDROCHLORIDE) (UNKNOWN) [Concomitant]
  4. FIBER (POLYCARBOPHIL CALCIUM) [Concomitant]
  5. GABAPENTIN (GABAPENTIN) (UNKNOWN) (GABAPENTIN) [Concomitant]
  6. HYDROCHLOROTHIAZIDE HCL (HYDROCHLOROTHIAZIDE) (UNKNOWN) [Concomitant]
  7. HYDROMORPHONE HCL (HYDROMORPHONE HYDROCHLORIDE) (UNKNOWN) [Concomitant]
  8. LOSARTAN POTASSIUM (LOSARTAN POTASSIUM) (UNKNOWN) [Concomitant]

REACTIONS (1)
  - Anaemia [None]
